FAERS Safety Report 5049533-8 (Version None)
Quarter: 2006Q2

REPORT INFORMATION
  Report Type: 
  Country: None (occurrence: None)
  Receive Date: 20060613
  Receipt Date: 20060421
  Transmission Date: 20061013
  Serious: Yes (Other)
  Sender: FDA-Public Use
  Company Number: 2006-01053

PATIENT
  Age: 44 Year
  Sex: Female
  Weight: 56.7 kg

DRUGS (7)
  1. VELCADE [Suspect]
     Indication: MULTIPLE MYELOMA
     Dosage: 1.30 MG/M2, INTRAVENOUS
     Route: 042
     Dates: start: 20060327, end: 20060407
  2. LEVAQUIN [Concomitant]
  3. COMPAZINE [Concomitant]
  4. PROCRIT [Concomitant]
  5. ZOLOFT [Concomitant]
  6. PRILOSEC [Concomitant]
  7. ATIVAN [Concomitant]

REACTIONS (1)
  - THROMBOCYTOPENIA [None]
